FAERS Safety Report 17552023 (Version 2)
Quarter: 2020Q1

REPORT INFORMATION
  Report Type: Spontaneous
  Country: DE (occurrence: DE)
  Receive Date: 20200317
  Receipt Date: 20200325
  Transmission Date: 20200409
  Serious: Yes (Hospitalization, Other)
  Sender: FDA-Public Use
  Company Number: DE-009507513-2003DEU003342

PATIENT
  Age: 27 Year
  Sex: Female

DRUGS (5)
  1. BEMFOLA [Suspect]
     Active Substance: FOLLITROPIN
     Indication: ASSISTED REPRODUCTIVE TECHNOLOGY
     Dosage: 2ND DAY OF THE CYCLE UNTIL 12TH DAY OF THE CYCLE (STRENGTH: 150 IU/0.25 ML)
  2. LUVERIS [Suspect]
     Active Substance: LUTROPIN ALFA
     Indication: ASSISTED REPRODUCTIVE TECHNOLOGY
     Dosage: 10TH DAY OF THE CYCLE UNTIL 12TH DAY OF THE CYCLE RESPECTIVELY TWICE (STRENGTH: 75 ?E)
  3. DECAPEPTYL (ACETATE) [Suspect]
     Active Substance: TRIPTORELIN ACETATE
     Indication: ASSISTED REPRODUCTIVE TECHNOLOGY
     Dosage: 13TH DAY OF THE CYCLE TWICE (STRENGTH: 0,1 MG/1ML)
  4. ORGALUTRAN [Suspect]
     Active Substance: GANIRELIX ACETATE
     Indication: ASSISTED REPRODUCTIVE TECHNOLOGY
     Dosage: 6TH DAY OF THE CYCLE UNTIL 9TH DAY OF THE CYCLE A HALF ORGALUTRAN 0,25MG/0,5ML (STRENGTH: 0,25MG/0,5
  5. BEMFOLA [Suspect]
     Active Substance: FOLLITROPIN
     Indication: ASSISTED REPRODUCTIVE TECHNOLOGY
     Dosage: 1ST DAY OF THE CYCLE

REACTIONS (4)
  - Abdominal pain lower [Unknown]
  - Intra-abdominal fluid collection [Unknown]
  - Movement disorder [Unknown]
  - Ovarian hyperstimulation syndrome [Unknown]

NARRATIVE: CASE EVENT DATE: 20200224
